FAERS Safety Report 6683081-4 (Version None)
Quarter: 2010Q2

REPORT INFORMATION
  Report Type: 
  Country: None (occurrence: None)
  Receive Date: 20100415
  Receipt Date: 20100407
  Transmission Date: 20101027
  Serious: Yes (Hospitalization, Other)
  Sender: FDA-Public Use
  Company Number: PHHY2010RU17556

PATIENT
  Age: 9 Year

DRUGS (2)
  1. FORADIL [Suspect]
     Indication: ASTHMA
  2. FLUTICASONE PROPIONATE [Concomitant]

REACTIONS (7)
  - BRONCHOSPASM [None]
  - COUGH [None]
  - LACRIMATION INCREASED [None]
  - LARYNGEAL OEDEMA [None]
  - PHARYNGEAL OEDEMA [None]
  - RESPIRATION ABNORMAL [None]
  - RHINORRHOEA [None]
